FAERS Safety Report 18943603 (Version 1)
Quarter: 2021Q1

REPORT INFORMATION
  Report Type: Spontaneous
  Country: BR (occurrence: BR)
  Receive Date: 20210226
  Receipt Date: 20210226
  Transmission Date: 20210420
  Serious: Yes (Other)
  Sender: FDA-Public Use
  Company Number: BR-SA-2020SA269587

PATIENT
  Age: 59 Year
  Sex: Female
  Weight: 59 kg

DRUGS (3)
  1. CLEXANE [Suspect]
     Active Substance: ENOXAPARIN SODIUM
     Indication: PLASTIC SURGERY
     Dosage: UNK
     Dates: start: 2019
  2. CLEXANE [Suspect]
     Active Substance: ENOXAPARIN SODIUM
     Dosage: 1 DF, QD
     Route: 058
     Dates: start: 20200917, end: 20200919
  3. SYNTHROID [Concomitant]
     Active Substance: LEVOTHYROXINE SODIUM
     Indication: THYROID DISORDER
     Dosage: 1 DF, QD

REACTIONS (6)
  - Pathologic myopia [Recovered/Resolved]
  - Eye irritation [Unknown]
  - Corneal bleeding [Recovered/Resolved]
  - Retinal haemorrhage [Recovered/Resolved]
  - Retinal disorder [Recovering/Resolving]
  - Visual impairment [Unknown]

NARRATIVE: CASE EVENT DATE: 2019
